FAERS Safety Report 7597388-X (Version None)
Quarter: 2011Q3

REPORT INFORMATION
  Report Type: 
  Country: None (occurrence: None)
  Receive Date: 20110708
  Receipt Date: 20110624
  Transmission Date: 20111222
  Serious: Yes (Hospitalization)
  Sender: FDA-Public Use
  Company Number: PHHY2011AR56518

PATIENT
  Sex: Female

DRUGS (1)
  1. RASILEZ D [Suspect]
     Indication: HYPERTENSION
     Dosage: 150 MG, DAILY
     Dates: start: 20090101

REACTIONS (1)
  - ACUTE MYOCARDIAL INFARCTION [None]
